FAERS Safety Report 17689108 (Version 1)
Quarter: 2020Q2

REPORT INFORMATION
  Report Type: Spontaneous
  Country: CN (occurrence: CN)
  Receive Date: 20200421
  Receipt Date: 20200421
  Transmission Date: 20200714
  Serious: Yes (Hospitalization)
  Sender: FDA-Public Use
  Company Number: CN-ASTRAZENECA-2020SE52080

PATIENT
  Age: 27022 Day
  Sex: Male
  Weight: 65 kg

DRUGS (3)
  1. CHYMOTRYPSIN [Suspect]
     Active Substance: CHYMOTRYPSIN
     Indication: PNEUMONIA
     Dosage: 4000 UNITS QD
     Route: 055
     Dates: start: 20200330, end: 20200406
  2. SODIUM CHLORIDE. [Concomitant]
     Active Substance: SODIUM CHLORIDE
     Route: 055
     Dates: start: 20200330, end: 20200406
  3. PULMICORT RESPULES [Suspect]
     Active Substance: BUDESONIDE
     Indication: PNEUMONIA
     Route: 055
     Dates: start: 20200330, end: 20200406

REACTIONS (3)
  - Wheezing [Recovered/Resolved]
  - Asthma [Recovering/Resolving]
  - Cyanosis [Unknown]

NARRATIVE: CASE EVENT DATE: 20200330
